FAERS Safety Report 5856368-2 (Version None)
Quarter: 2008Q3

REPORT INFORMATION
  Report Type: 
  Country: None (occurrence: None)
  Receive Date: 20080825
  Receipt Date: 20080815
  Transmission Date: 20090109
  Serious: Yes (Hospitalization)
  Sender: FDA-Public Use
  Company Number: TH-JNJFOC-20080503837

PATIENT
  Sex: Male
  Weight: 61 kg

DRUGS (3)
  1. PALIPERIDONE ER [Suspect]
     Route: 048
  2. PALIPERIDONE ER [Suspect]
     Route: 048
  3. PALIPERIDONE ER [Suspect]
     Indication: SCHIZOPHRENIA
     Route: 048

REACTIONS (3)
  - AGGRESSION [None]
  - DELUSION OF GRANDEUR [None]
  - MANIA [None]
